FAERS Safety Report 8506049 (Version 4)
Quarter: 2012Q4

REPORT INFORMATION
  Report Type: 
  Country: NL (occurrence: NL)
  Receive Date: 20120412
  Receipt Date: 20121226
  Transmission Date: 20130627
  Serious: No
  Sender: FDA-Public Use
  Company Number: NL-ROCHE-1054211

PATIENT
  Sex: Female
  Weight: 64.5 kg

DRUGS (2)
  1. ROACCUTANE [Suspect]
     Indication: ACNE
     Route: 048
     Dates: start: 20110618, end: 20120215
  2. NUVARING [Concomitant]
     Indication: CONTRACEPTION
     Dosage: intraveginal route
     Route: 065
     Dates: start: 201009, end: 20120319

REACTIONS (1)
  - Unintended pregnancy [Unknown]
